FAERS Safety Report 8214127-X (Version None)
Quarter: 2012Q1

REPORT INFORMATION
  Report Type: 
  Country: None (occurrence: None)
  Receive Date: 20120314
  Receipt Date: 20120314
  Transmission Date: 20120608
  Serious: Yes (Hospitalization)
  Sender: FDA-Public Use
  Company Number: None

PATIENT
  Age: 88 Year
  Sex: Female
  Weight: 71.2 kg

DRUGS (16)
  1. ATORVASTATIN [Concomitant]
  2. AMLODIPINE [Concomitant]
  3. PLAVIX [Suspect]
     Indication: CORONARY ANGIOPLASTY
     Dosage: 75MG DAILY PO CHRONIC
     Route: 048
  4. PLAVIX [Suspect]
     Indication: MYOCARDIAL INFARCTION
     Dosage: 75MG DAILY PO CHRONIC
     Route: 048
  5. PLAVIX [Suspect]
     Indication: STENT PLACEMENT
     Dosage: 75MG DAILY PO CHRONIC
     Route: 048
  6. OMEPRAZOLE [Concomitant]
  7. SENOKOT [Concomitant]
  8. MULTI-VITAMINS [Concomitant]
  9. BUMEX [Concomitant]
  10. COLACE [Concomitant]
  11. MELATONIN [Concomitant]
  12. PIOGLITAZONE [Concomitant]
  13. TOPROL-XL [Concomitant]
  14. STARLIX [Concomitant]
  15. NSAIDS (NOT SPECIFIED) [Suspect]
     Indication: PAIN
     Dosage: ^REGULAR BASIS^
  16. METOCLOPRAMIDE [Concomitant]

REACTIONS (6)
  - DUODENITIS [None]
  - UPPER GASTROINTESTINAL HAEMORRHAGE [None]
  - HIATUS HERNIA [None]
  - HAEMORRHAGIC ANAEMIA [None]
  - ULCER [None]
  - GASTRITIS [None]
